FAERS Safety Report 12843809 (Version 3)
Quarter: 2016Q4

REPORT INFORMATION
  Report Type: Spontaneous
  Country: US (occurrence: US)
  Receive Date: 20161013
  Receipt Date: 20161123
  Transmission Date: 20170207
  Serious: Yes (Other)
  Sender: FDA-Public Use
  Company Number: US-BAYER-2016-196547

PATIENT
  Age: 47 Year
  Sex: Female

DRUGS (1)
  1. CLIMARA [Suspect]
     Active Substance: ESTRADIOL
     Indication: HORMONE REPLACEMENT THERAPY
     Dosage: 1 PATCH, WEEKLY
     Route: 062

REACTIONS (4)
  - Multiple sclerosis [None]
  - Hyperhidrosis [None]
  - Product packaging quantity issue [None]
  - Epilepsy [None]

NARRATIVE: CASE EVENT DATE: 20161009
